FAERS Safety Report 7208444-X (Version None)
Quarter: 2011Q1

REPORT INFORMATION
  Report Type: 
  Country: None (occurrence: None)
  Receive Date: 20110104
  Receipt Date: 20101228
  Transmission Date: 20110831
  Serious: Yes (Hospitalization)
  Sender: FDA-Public Use
  Company Number: FR-PFIZER INC-2010179940

PATIENT
  Age: 79 Year
  Sex: Female

DRUGS (8)
  1. TAHOR [Suspect]
     Dosage: 10 MG, 1X/DAY
     Route: 048
     Dates: end: 20101118
  2. PREVISCAN [Suspect]
     Dosage: UNK
     Route: 048
     Dates: end: 20101118
  3. CALCIDOSE VITAMINE D [Concomitant]
     Dosage: 2 DF, DAILY
  4. APROVEL [Suspect]
     Dosage: 300 MG, 1X/DAY
     Route: 048
     Dates: end: 20101118
  5. ESIDRIX [Suspect]
     Dosage: 12.5 MG, 1X/DAY
     Route: 048
     Dates: end: 20101118
  6. COVERSYL [Concomitant]
     Dosage: 5 MG, DAILY
  7. PARACETAMOL [Concomitant]
     Dosage: 2 G, 3X/DAY AS NEEDED
  8. NEBIVOLOL HYDROCHLORIDE [Concomitant]
     Dosage: 5 MG, 1X/DAY
     Route: 048

REACTIONS (1)
  - TUBULOINTERSTITIAL NEPHRITIS [None]
